FAERS Safety Report 7129026-4 (Version None)
Quarter: 2010Q4

REPORT INFORMATION
  Report Type: 
  Country: None (occurrence: None)
  Receive Date: 20101130
  Receipt Date: 20101115
  Transmission Date: 20110411
  Serious: Yes (Disabling)
  Sender: FDA-Public Use
  Company Number: IT-PFIZER INC-2010155725

PATIENT
  Age: 77 Year
  Sex: Female

DRUGS (4)
  1. CORDARONE [Suspect]
     Indication: ATRIAL FIBRILLATION
     Dosage: UNK
     Route: 048
     Dates: start: 20100501, end: 20100730
  2. LEVOPRAID [Suspect]
     Indication: DECREASED APPETITE
     Dosage: UNK
     Route: 048
     Dates: start: 20100501, end: 20100730
  3. METFORAL [Concomitant]
  4. LASIX [Concomitant]

REACTIONS (1)
  - EXTRAPYRAMIDAL DISORDER [None]
